FAERS Safety Report 13590964 (Version 1)
Quarter: 2017Q2

REPORT INFORMATION
  Report Type: Spontaneous
  Country: US (occurrence: US)
  Receive Date: 20170528
  Receipt Date: 20170528
  Transmission Date: 20170830
  Serious: No
  Sender: FDA-Public Use
  Company Number: None

PATIENT
  Age: 54 Year
  Sex: Male
  Weight: 84.82 kg

DRUGS (1)
  1. ADALIMUMAB [Suspect]
     Active Substance: ADALIMUMAB
     Indication: ARTHRITIS
     Dates: start: 20140214, end: 20170227

REACTIONS (5)
  - Pyrexia [None]
  - Lymphadenopathy [None]
  - Dyspnoea [None]
  - Therapy cessation [None]
  - Sarcoidosis [None]

NARRATIVE: CASE EVENT DATE: 20170227
